FAERS Safety Report 4536456-3 (Version None)
Quarter: 2004Q4

REPORT INFORMATION
  Report Type: 
  Country: None (occurrence: None)
  Receive Date: 20041223
  Receipt Date: 20041215
  Transmission Date: 20050328
  Serious: Yes (Hospitalization)
  Sender: FDA-Public Use
  Company Number: US-JNJFOC-20040707048

PATIENT
  Age: 72 Year
  Sex: Female

DRUGS (13)
  1. DURAGESIC [Suspect]
     Route: 062
     Dates: start: 20040401, end: 20040801
  2. CLONIDINE [Concomitant]
     Indication: HYPERTENSION
     Route: 049
  3. NORVASC [Concomitant]
     Indication: HYPERTENSION
     Route: 049
  4. BENICAR [Concomitant]
     Indication: HYPERTENSION
     Route: 049
  5. VALIUM [Concomitant]
     Dosage: 5-10 MG AS NEEDED
     Route: 049
  6. TYLENOL W/ CODEINE NO. 3 [Concomitant]
     Route: 049
  7. TYLENOL W/ CODEINE NO. 3 [Concomitant]
     Indication: PAIN
     Dosage: 300/30 MG, 1/2 TAB AS NEEDED
     Route: 049
  8. CELEBREX [Concomitant]
     Indication: DRUG USE FOR UNKNOWN INDICATION
     Route: 049
  9. OXYBUTYNIN CHLORIDE [Concomitant]
     Indication: DRUG USE FOR UNKNOWN INDICATION
     Route: 049
  10. SULFATRIM [Concomitant]
  11. SULFATRIM [Concomitant]
     Indication: DRUG USE FOR UNKNOWN INDICATION
     Dosage: 200/40 MG/5ML, TWICE A DAY FOR SEVEN DAYS
  12. ZOLOFT [Concomitant]
  13. DECADRON [Concomitant]

REACTIONS (24)
  - ARTHRALGIA [None]
  - ASTHENIA [None]
  - BACK PAIN [None]
  - DYSPNOEA [None]
  - FEELING JITTERY [None]
  - HEADACHE [None]
  - HYPOAESTHESIA [None]
  - INCISIONAL DRAINAGE [None]
  - IRRITABLE BOWEL SYNDROME [None]
  - JOINT DISLOCATION [None]
  - JOINT SWELLING [None]
  - LUMBAR SPINAL STENOSIS [None]
  - MYASTHENIC SYNDROME [None]
  - PAIN EXACERBATED [None]
  - PAIN IN EXTREMITY [None]
  - SPINAL LAMINECTOMY [None]
  - SPINAL OSTEOARTHRITIS [None]
  - SPONDYLOSIS [None]
  - STRESS INCONTINENCE [None]
  - THROAT TIGHTNESS [None]
  - TREMOR [None]
  - VOMITING [None]
  - WEIGHT DECREASED [None]
  - WHEEZING [None]
